FAERS Safety Report 20262737 (Version 1)
Quarter: 2021Q4

REPORT INFORMATION
  Report Type: Spontaneous
  Country: US (occurrence: US)
  Receive Date: 20211231
  Receipt Date: 20211231
  Transmission Date: 20220303
  Serious: No
  Sender: FDA-Public Use
  Company Number: US-GLAXOSMITHKLINE-US2021264956

PATIENT
  Age: 52 Year
  Sex: Female

DRUGS (2)
  1. ZEJULA [Suspect]
     Active Substance: NIRAPARIB
     Indication: Genital neoplasm malignant female
     Dosage: UNK
     Route: 048
  2. ZEJULA [Suspect]
     Active Substance: NIRAPARIB
     Dosage: 100 MG, QD
     Route: 048
     Dates: start: 202109

REACTIONS (6)
  - Headache [Recovered/Resolved]
  - Carbohydrate antigen 125 increased [Unknown]
  - Gastric disorder [Recovering/Resolving]
  - Sleep disorder [Unknown]
  - Anxiety [Recovered/Resolved]
  - Initial insomnia [Unknown]

NARRATIVE: CASE EVENT DATE: 20211227
